FAERS Safety Report 8790765 (Version 1)
Quarter: 2012Q4

REPORT INFORMATION
  Report Type: Spontaneous
  Country: US (occurrence: None)
  Receive Date: 20120913
  Receipt Date: 20120913
  Transmission Date: 20130627
  Serious: Yes (Hospitalization)
  Sender: FDA-Public Use
  Company Number: None

PATIENT
  Age: 52 Year
  Sex: Male
  Weight: 83.46 kg

DRUGS (2)
  1. VANCOMYCIN HCL [Suspect]
     Indication: CATHETER RELATED INFECTION
     Dosage: 1500mg every 12 hours IV
     Route: 042
     Dates: start: 20120822, end: 20120827
  2. VANCOMYCIN HCL [Suspect]
     Indication: STAPHYLOCOCCAL INFECTION
     Dosage: 1500mg every 12 hours IV
     Route: 042
     Dates: start: 20120822, end: 20120827

REACTIONS (2)
  - Drug level increased [None]
  - Product quality issue [None]
